FAERS Safety Report 8875270 (Version 2)
Quarter: 2013Q3

REPORT INFORMATION
  Report Type: Report from Study
  Country: JP (occurrence: JP)
  Receive Date: 20121029
  Receipt Date: 20130809
  Transmission Date: 20140515
  Serious: Yes (Other)
  Sender: FDA-Public Use
  Company Number: JP-VERTEX PHARMACEUTICAL INC.-2012-023643

PATIENT
  Age: 45 Year
  Sex: Male

DRUGS (8)
  1. VX-950 (TELAPREVIR) [Suspect]
     Indication: CHRONIC HEPATITIS C
     Dosage: 2250 MG, QD
     Route: 048
     Dates: start: 20120820, end: 20120903
  2. PEGINTERFERON ALFA-2B [Suspect]
     Indication: CHRONIC HEPATITIS C
     Dosage: 1.5 UNK, QW
     Route: 058
     Dates: start: 20120820, end: 20120827
  3. RIBAVIRIN [Concomitant]
     Indication: HEPATITIS C
     Dosage: 800 MG, QD
     Route: 048
     Dates: start: 20120820, end: 20120903
  4. LOXONIN [Concomitant]
     Dosage: 3 TAB, QD
     Route: 048
     Dates: start: 20120820, end: 20120903
  5. MUCOSTA [Concomitant]
     Dosage: 3 TAB, QD
     Route: 048
     Dates: start: 20120820, end: 20120903
  6. TAKEPRON [Concomitant]
     Dosage: 1 TAB, QD
     Route: 048
     Dates: start: 20120820, end: 20120903
  7. ALLEGRA [Concomitant]
     Dosage: 120 MG, QD
     Route: 048
     Dates: start: 20120820, end: 20120903
  8. URINORM [Concomitant]
     Dosage: 25 MG, QD
     Route: 048
     Dates: start: 20120820, end: 20120903

REACTIONS (1)
  - Depression [Recovered/Resolved]
